FAERS Safety Report 20845141 (Version 2)
Quarter: 2022Q2

REPORT INFORMATION
  Report Type: Spontaneous
  Country: US (occurrence: US)
  Receive Date: 20220518
  Receipt Date: 20220616
  Transmission Date: 20220721
  Serious: Yes (Other)
  Sender: FDA-Public Use
  Company Number: US-ALLERGAN-2214207US

PATIENT
  Sex: Male
  Weight: 65.77 kg

DRUGS (13)
  1. MEMANTINE HYDROCHLORIDE [Suspect]
     Active Substance: MEMANTINE HYDROCHLORIDE
     Indication: Dyskinesia
     Dosage: 1 DF, QD
     Dates: start: 20220422, end: 20220428
  2. DUOPA [Suspect]
     Active Substance: CARBIDOPA\LEVODOPA
     Indication: Parkinson^s disease
     Dosage: UNK
     Dates: start: 201006
  3. LUMIGAN [Concomitant]
     Active Substance: BIMATOPROST
  4. LIBRIUM [Concomitant]
     Active Substance: CHLORDIAZEPOXIDE HYDROCHLORIDE
  5. SINEMET [Concomitant]
     Active Substance: CARBIDOPA\LEVODOPA
  6. CITALOPRAM [Concomitant]
     Active Substance: CITALOPRAM HYDROBROMIDE
  7. BRIMONIDINE [Concomitant]
     Active Substance: BRIMONIDINE TARTRATE
  8. AMANTADINE [Concomitant]
     Active Substance: AMANTADINE
  9. SULFAMETHOXAZOLE\TRIMETHOPRIM [Concomitant]
     Active Substance: SULFAMETHOXAZOLE\TRIMETHOPRIM
  10. VENLAFAXINE [Concomitant]
     Active Substance: VENLAFAXINE HYDROCHLORIDE
  11. COVID-19 VACCINE [Concomitant]
     Indication: COVID-19 immunisation
     Dosage: UNK
  12. COVID-19 VACCINE [Concomitant]
     Dosage: UNK UNK, SINGLE
     Dates: start: 20211019, end: 20211019
  13. COVID-19 VACCINE [Concomitant]
     Dosage: UNK UNK, SINGLE
     Dates: start: 20210318, end: 20210318

REACTIONS (10)
  - Deafness [Not Recovered/Not Resolved]
  - Balance disorder [Recovering/Resolving]
  - Fall [Recovered/Resolved]
  - Skin laceration [Recovering/Resolving]
  - Eye contusion [Recovering/Resolving]
  - Sensory disturbance [Not Recovered/Not Resolved]
  - Memory impairment [Not Recovered/Not Resolved]
  - Off label use [Unknown]
  - Hallucination [Recovering/Resolving]
  - Dizziness [Recovering/Resolving]

NARRATIVE: CASE EVENT DATE: 20220101
